FAERS Safety Report 16877103 (Version 2)
Quarter: 2019Q4

REPORT INFORMATION
  Report Type: Report from Study
  Country: US (occurrence: US)
  Receive Date: 20191002
  Receipt Date: 20191002
  Transmission Date: 20200122
  Serious: Yes (Hospitalization)
  Sender: FDA-Public Use
  Company Number: US-BAYER-2019-172633

PATIENT
  Age: 57 Year
  Sex: Female
  Weight: 88.44 kg

DRUGS (3)
  1. ADEMPAS [Suspect]
     Active Substance: RIOCIGUAT
     Indication: PULMONARY ARTERIAL HYPERTENSION
     Dosage: 2.5 MG, TID
     Route: 048
  2. OPSUMIT [Concomitant]
     Active Substance: MACITENTAN
     Dosage: UNK
  3. ADEMPAS [Suspect]
     Active Substance: RIOCIGUAT
     Indication: PULMONARY ARTERIAL HYPERTENSION
     Dosage: UNK
     Dates: start: 20150904

REACTIONS (7)
  - Hospitalisation [None]
  - Hepatic failure [None]
  - Abdominal pain [None]
  - Oedema [None]
  - Acute kidney injury [None]
  - Fluid retention [None]
  - Mental status changes [None]

NARRATIVE: CASE EVENT DATE: 20190722
